FAERS Safety Report 23755713 (Version 3)
Quarter: 2024Q2

REPORT INFORMATION
  Report Type: Spontaneous
  Country: FI (occurrence: FI)
  Receive Date: 20240418
  Receipt Date: 20240624
  Transmission Date: 20240715
  Serious: Yes (Other)
  Sender: FDA-Public Use
  Company Number: FI-SANOFI-01996863

PATIENT
  Age: 58 Year
  Sex: Male

DRUGS (3)
  1. DUPIXENT [Suspect]
     Active Substance: DUPILUMAB
     Indication: Dermatitis atopic
     Dosage: UNK
     Dates: start: 20230524
  2. CEPHALEXIN [Concomitant]
     Active Substance: CEPHALEXIN
     Indication: Diverticulitis
     Dosage: UNK
  3. FLAGYL [Concomitant]
     Active Substance: METRONIDAZOLE\METRONIDAZOLE HYDROCHLORIDE
     Indication: Diverticulitis
     Dosage: UNK

REACTIONS (2)
  - Diverticulitis [Recovered/Resolved]
  - Large intestinal stenosis [Recovered/Resolved]
